FAERS Safety Report 9078468 (Version 1)
Quarter: 2013Q1

REPORT INFORMATION
  Report Type: Report from Study
  Country: US (occurrence: US)
  Receive Date: 20130130
  Receipt Date: 20130130
  Transmission Date: 20140127
  Serious: No
  Sender: FDA-Public Use
  Company Number: US-ABBOTT-12P-163-0956845-00

PATIENT
  Age: 52 Year
  Sex: Female

DRUGS (8)
  1. HUMIRA 40 MG/0.8 ML PEN [Suspect]
     Indication: CROHN^S DISEASE
     Dates: start: 20120307
  2. EFFEXOR [Concomitant]
     Indication: DEPRESSION
  3. TOPAMAX [Concomitant]
     Indication: MIGRAINE
  4. LORCET 10/650 [Concomitant]
     Indication: PRODUCT USED FOR UNKNOWN INDICATION
     Dosage: 10/650 MG
  5. FLEXERIL [Concomitant]
     Indication: BACK PAIN
  6. IMITREX [Concomitant]
     Indication: MIGRAINE
     Dosage: PRN IF THE TOPAMAX DOESN^T WORK
  7. PROMETHAZINE [Concomitant]
     Indication: NAUSEA
  8. PROMETHAZINE [Concomitant]
     Indication: GASTRIC OPERATION

REACTIONS (4)
  - Drug administered at inappropriate site [Recovered/Resolved]
  - Wrong technique in drug usage process [Recovered/Resolved]
  - Injection site pain [Recovered/Resolved]
  - Injection site haemorrhage [Recovered/Resolved]
